FAERS Safety Report 5355153-8 (Version None)
Quarter: 2007Q2

REPORT INFORMATION
  Report Type: 
  Country: None (occurrence: None)
  Receive Date: 20070613
  Receipt Date: 20070605
  Transmission Date: 20071010
  Serious: Yes (Other)
  Sender: FDA-Public Use
  Company Number: DE-ELI_LILLY_AND_COMPANY-DE200706002011

PATIENT
  Age: 45 Year
  Sex: Female

DRUGS (7)
  1. ZYPREXA [Suspect]
     Indication: SCHIZOAFFECTIVE DISORDER
     Dosage: 20 MG, DAILY (1/D)
     Route: 048
     Dates: start: 20070101
  2. ZYPREXA [Suspect]
     Dosage: 10 MG, DAILY (1/D)
     Route: 048
     Dates: start: 20070306
  3. ZYPREXA [Suspect]
     Dosage: 15 MG, DAILY (1/D)
     Route: 048
     Dates: start: 20070320
  4. ABILIFY [Concomitant]
     Dosage: 7.5 MG, DAILY (1/D)
     Route: 048
     Dates: start: 20070101
  5. TAVOR [Concomitant]
     Dosage: 8 MG, DAILY (1/D)
     Dates: start: 20070101
  6. AUGMENTAN /00756801/ [Concomitant]
     Dosage: 875 MG, 2/D
     Dates: start: 20070101, end: 20070201
  7. TREVILOR [Concomitant]
     Dosage: 37.5 MG, DAILY (1/D)
     Dates: start: 20070301

REACTIONS (1)
  - LEUKOPENIA [None]
